FAERS Safety Report 15625940 (Version 1)
Quarter: 2018Q4

REPORT INFORMATION
  Report Type: Spontaneous
  Country: JP (occurrence: JP)
  Receive Date: 20181116
  Receipt Date: 20181116
  Transmission Date: 20190205
  Serious: Yes (Death, Other)
  Sender: FDA-Public Use
  Company Number: JP-GLAXOSMITHKLINE-JP2018JPN112505

PATIENT
  Age: 3 Decade
  Sex: Male

DRUGS (2)
  1. FLOLAN [Suspect]
     Active Substance: EPOPROSTENOL SODIUM
     Indication: PULMONARY VEIN OCCLUSION
     Dosage: 0.3 NG/KG/MIN
     Route: 042
  2. FLOLAN [Suspect]
     Active Substance: EPOPROSTENOL SODIUM
     Dosage: 0.5 NG/KG/MIN
     Route: 042

REACTIONS (7)
  - Product use in unapproved indication [Unknown]
  - Off label use [Unknown]
  - Condition aggravated [Fatal]
  - Pulmonary oedema [Unknown]
  - Hypoxia [Unknown]
  - Cardiovascular insufficiency [Fatal]
  - Respiratory disorder [Unknown]
